FAERS Safety Report 6819852-0 (Version None)
Quarter: 2010Q2

REPORT INFORMATION
  Report Type: 
  Country: None (occurrence: None)
  Receive Date: 20100630
  Receipt Date: 20100624
  Transmission Date: 20101027
  Serious: Yes (Death)
  Sender: FDA-Public Use
  Company Number: 2010-2272

PATIENT
  Age: 57 Year
  Sex: Female

DRUGS (6)
  1. DYSPORT [Suspect]
     Indication: SKIN WRINKLING
     Dates: start: 20091113, end: 20091113
  2. BOTOX [Suspect]
     Indication: SKIN WRINKLING
     Dates: start: 20091113, end: 20091113
  3. TRAZODONE HCL [Concomitant]
  4. INSULIN (INSULIN) [Concomitant]
  5. PAIN MEDICATION *MENTHOL W/METHYL SALICYLATE) [Concomitant]
  6. ANIDEPRESSANT (ANTIDEPRESSSANTS) [Concomitant]

REACTIONS (1)
  - DEATH [None]
